FAERS Safety Report 7498606-9 (Version None)
Quarter: 2011Q2

REPORT INFORMATION
  Report Type: 
  Country: None (occurrence: None)
  Receive Date: 20110524
  Receipt Date: 20110127
  Transmission Date: 20111010
  Serious: Yes (Hospitalization)
  Sender: FDA-Public Use
  Company Number: US-BAYER-201016909NA

PATIENT
  Age: 20 Year
  Sex: Female
  Weight: 104.31 kg

DRUGS (15)
  1. LEVOTHYROXINE SODIUM [Concomitant]
     Dosage: UNK
     Dates: start: 20070101
  2. CEFUROXIME [Concomitant]
     Dosage: 500 MG, UNK
     Dates: start: 20090201
  3. LORAZEPAM [Concomitant]
     Dosage: 0.5 MG, UNK
  4. SULFAMETHOXAZOLE AND TRIMETHOPRIM DOUBLE STRENGTH [Concomitant]
  5. GLUCOPHAGE [Concomitant]
  6. MEDROXYPROGESTERONE ACETATE [Concomitant]
     Dosage: 10 MG, UNK
  7. FLUCONAZOLE [Concomitant]
     Dosage: 150 MG, UNK
  8. SYNTHROID [Concomitant]
  9. NSAID'S [Concomitant]
  10. METFORMIN HCL [Concomitant]
     Indication: DIABETES MELLITUS
     Dosage: 500 MG, UNK
     Dates: start: 20020101
  11. YAZ [Suspect]
     Indication: PREMENSTRUAL SYNDROME
     Dosage: UNK UNK, QD
     Route: 048
     Dates: start: 20090101, end: 20090501
  12. PROVERA [Concomitant]
     Dosage: UNK
     Dates: start: 20090101
  13. PROZAC [Concomitant]
     Indication: DEPRESSION
     Dosage: 20 MG, UNK
  14. CYMBALTA [Concomitant]
  15. INSULIN [INSULIN] [Concomitant]

REACTIONS (7)
  - PALPITATIONS [None]
  - NAUSEA [None]
  - MENTAL DISORDER [None]
  - WEIGHT INCREASED [None]
  - DYSPNOEA [None]
  - CHEST PAIN [None]
  - PULMONARY EMBOLISM [None]
